FAERS Safety Report 18691351 (Version 1)
Quarter: 2021Q1

REPORT INFORMATION
  Report Type: Spontaneous
  Country: US (occurrence: US)
  Receive Date: 20210101
  Receipt Date: 20210101
  Transmission Date: 20210419
  Serious: Yes (Other)
  Sender: FDA-Public Use
  Company Number: US-TEVA-2020-US-1864282

PATIENT
  Age: 61 Year
  Sex: Female

DRUGS (2)
  1. ELETRIPTAN. [Suspect]
     Active Substance: ELETRIPTAN
     Route: 065
  2. ELETRIPTAN TEVA [Suspect]
     Active Substance: ELETRIPTAN
     Route: 065

REACTIONS (5)
  - Respiratory arrest [Unknown]
  - Drug ineffective [Unknown]
  - Hallucination [Unknown]
  - Fall [Unknown]
  - Cerebrovascular accident [Unknown]
